FAERS Safety Report 8073846-9 (Version None)
Quarter: 2012Q1

REPORT INFORMATION
  Report Type: 
  Country: None (occurrence: None)
  Receive Date: 20120126
  Receipt Date: 20120124
  Transmission Date: 20120608
  Serious: Yes (Hospitalization)
  Sender: FDA-Public Use
  Company Number: IT-ROCHE-1033125

PATIENT
  Sex: Female

DRUGS (3)
  1. MABTHERA [Suspect]
     Indication: NEUROMYELITIS OPTICA
     Route: 041
     Dates: start: 20081001, end: 20110930
  2. LEVOTHYROXINE SODIUM [Concomitant]
     Route: 048
  3. COUMADIN [Concomitant]
     Route: 048

REACTIONS (1)
  - BREAST CANCER [None]
